FAERS Safety Report 18616810 (Version 1)
Quarter: 2020Q4

REPORT INFORMATION
  Report Type: Spontaneous
  Country: US (occurrence: US)
  Receive Date: 20201215
  Receipt Date: 20201215
  Transmission Date: 20210114
  Serious: No
  Sender: FDA-Public Use
  Company Number: US-SA-2020SA353927

PATIENT

DRUGS (1)
  1. FLOMAX [Suspect]
     Active Substance: TAMSULOSIN HYDROCHLORIDE
     Indication: HAEMATURIA
     Dosage: DOSE ON A THURSDAY NIGHT AND FRIDAY NIGHT
     Route: 065

REACTIONS (1)
  - Hypotension [Unknown]
